FAERS Safety Report 10220771 (Version 1)
Quarter: 2014Q2

REPORT INFORMATION
  Report Type: Spontaneous
  Country: US (occurrence: US)
  Receive Date: 20140606
  Receipt Date: 20140606
  Transmission Date: 20141212
  Serious: No
  Sender: FDA-Public Use
  Company Number: US-PFIZER INC-2014152877

PATIENT
  Sex: Female

DRUGS (2)
  1. ADVIL ALLERGY AND CONGESTION RELIEF [Suspect]
     Dosage: UNK, DAILY
     Route: 048
  2. ADVIL ALLERGY AND CONGESTION RELIEF [Suspect]
     Dosage: 2 TABLET, UNK
     Route: 048
     Dates: start: 201405

REACTIONS (1)
  - Fatigue [Unknown]
